FAERS Safety Report 9695748 (Version 1)
Quarter: 2013Q4

REPORT INFORMATION
  Report Type: Spontaneous
  Country: IT (occurrence: IT)
  Receive Date: 20131119
  Receipt Date: 20131119
  Transmission Date: 20140711
  Serious: Yes (Other)
  Sender: FDA-Public Use
  Company Number: IT-009507513-1311ITA005061

PATIENT
  Age: 54 Year
  Sex: Female

DRUGS (3)
  1. PEGINTRON [Suspect]
     Indication: CHRONIC HEPATITIS C
     Dosage: UNK, QW
     Route: 058
     Dates: start: 20131101, end: 20131104
  2. TELAPREVIR [Suspect]
     Indication: CHRONIC HEPATITIS C
     Dosage: UNK, CYCLICAL
     Route: 048
     Dates: start: 20131101, end: 20131104
  3. COPEGUS [Suspect]
     Indication: CHRONIC HEPATITIS C
     Dosage: UNK, CYCLICAL
     Route: 048
     Dates: start: 20131101, end: 20131104

REACTIONS (1)
  - Rash maculo-papular [Recovering/Resolving]
